FAERS Safety Report 4675554-0 (Version None)
Quarter: 2005Q2

REPORT INFORMATION
  Report Type: 
  Country: None (occurrence: None)
  Receive Date: 20050527
  Receipt Date: 20050411
  Transmission Date: 20051028
  Serious: No
  Sender: FDA-Public Use
  Company Number: US-BRISTOL-MYERS SQUIBB COMPANY-12929147

PATIENT
  Age: 68 Year
  Sex: Female
  Weight: 75 kg

DRUGS (7)
  1. ABILIFY [Suspect]
     Indication: BIPOLAR DISORDER
     Dosage: CONSUMER DECREASED ARIPIPRAZOLE TO 2.5 MG/DAY
     Dates: start: 20050308
  2. ABILIFY [Suspect]
     Indication: DEPRESSION
     Dosage: CONSUMER DECREASED ARIPIPRAZOLE TO 2.5 MG/DAY
     Dates: start: 20050308
  3. CELXA [Concomitant]
  4. ATIVAN [Concomitant]
  5. LASIX [Concomitant]
  6. POTASSIUM CHLORIDE [Concomitant]
  7. PREVACID [Concomitant]

REACTIONS (4)
  - INCREASED APPETITE [None]
  - INSOMNIA [None]
  - OEDEMA PERIPHERAL [None]
  - WEIGHT INCREASED [None]
